FAERS Safety Report 10758920 (Version 1)
Quarter: 2015Q1

REPORT INFORMATION
  Report Type: Spontaneous
  Country: US (occurrence: None)
  Receive Date: 20150202
  Receipt Date: 20150202
  Transmission Date: 20150721
  Serious: No
  Sender: FDA-Public Use
  Company Number: None

PATIENT
  Age: 65 Year
  Sex: Female
  Weight: 67.13 kg

DRUGS (1)
  1. MACROBID [Suspect]
     Active Substance: NITROFURANTOIN\NITROFURANTOIN MONOHYDRATE
     Indication: PREOPERATIVE CARE

REACTIONS (11)
  - Cough [None]
  - Dyspnoea [None]
  - Headache [None]
  - Nausea [None]
  - Post procedural complication [None]
  - Chills [None]
  - Asthenia [None]
  - Haemoptysis [None]
  - Toxicity to various agents [None]
  - Atelectasis [None]
  - Pyrexia [None]

NARRATIVE: CASE EVENT DATE: 20150128
